FAERS Safety Report 17917215 (Version 1)
Quarter: 2020Q2

REPORT INFORMATION
  Report Type: Spontaneous
  Country: CA (occurrence: CA)
  Receive Date: 20200619
  Receipt Date: 20200619
  Transmission Date: 20200714
  Serious: Yes (Hospitalization, Disabling, Other)
  Sender: FDA-Public Use
  Company Number: CA-TEVA-2020-CA-1789743

PATIENT
  Age: 33 Year
  Sex: Female
  Weight: 71 kg

DRUGS (1)
  1. ETHINYLESTRADIOL W/LEVONORGESTREL [Suspect]
     Active Substance: ETHINYL ESTRADIOL\LEVONORGESTREL
     Indication: CONTRACEPTION
     Dosage: 1 DOSAGE FORMS DAILY;
     Route: 048

REACTIONS (6)
  - Back pain [Recovered/Resolved]
  - Abdominal pain [Recovered/Resolved]
  - Dizziness [Recovered/Resolved]
  - Nausea [Recovered/Resolved]
  - Mood swings [Recovered/Resolved]
  - Migraine [Recovered/Resolved]
